FAERS Safety Report 14412580 (Version 1)
Quarter: 2018Q1

REPORT INFORMATION
  Report Type: Report from Study
  Country: US (occurrence: US)
  Receive Date: 20180119
  Receipt Date: 20180119
  Transmission Date: 20180509
  Serious: Yes (Other)
  Sender: FDA-Public Use
  Company Number: US-SAOL THERAPEUTICS-2018SAO00064

PATIENT

DRUGS (6)
  1. FENTANYL. [Suspect]
     Active Substance: FENTANYL
     Dosage: 395.93 ?G, \DAY; MAX DOSE
     Route: 037
     Dates: start: 20170928
  2. BUPIVACAINE. [Concomitant]
     Active Substance: BUPIVACAINE
     Dosage: 15.004 MG, \DAY
     Route: 037
     Dates: start: 20170928
  3. COMPOUNDED BACLOFEN [Suspect]
     Active Substance: BACLOFEN
     Dosage: 158.37 ?G, \DAY, MAX DOSE
     Route: 037
     Dates: start: 20170928
  4. COMPOUNDED BACLOFEN [Suspect]
     Active Substance: BACLOFEN
     Dosage: 100.02 ?G, \DAY
     Route: 037
     Dates: start: 20170928
  5. BUPIVACAINE. [Concomitant]
     Active Substance: BUPIVACAINE
     Dosage: 23.756 MG, \DAY
     Route: 037
     Dates: start: 20170928
  6. FENTANYL. [Suspect]
     Active Substance: FENTANYL
     Dosage: 250.06 ?G, \DAY
     Route: 037
     Dates: start: 20170928

REACTIONS (2)
  - Implant site discharge [Recovered/Resolved]
  - Implant site dehiscence [Recovering/Resolving]

NARRATIVE: CASE EVENT DATE: 20171016
